FAERS Safety Report 5572181-8 (Version None)
Quarter: 2007Q4

REPORT INFORMATION
  Report Type: 
  Country: None (occurrence: None)
  Receive Date: 20071221
  Receipt Date: 20071211
  Transmission Date: 20080405
  Serious: Yes (Hospitalization, Other)
  Sender: FDA-Public Use
  Company Number: HK-MERCK-0712HKG00008

PATIENT
  Age: 82 Year
  Sex: Female

DRUGS (4)
  1. FOSAMAX [Suspect]
     Indication: OSTEOPOROSIS
     Route: 048
     Dates: start: 19970101, end: 20060301
  2. CALCIUM CARBONATE [Concomitant]
     Route: 048
     Dates: start: 19970101
  3. GLUCOSAMINE HYDROCHLORIDE [Concomitant]
     Route: 048
     Dates: start: 20050101
  4. CHONDROITIN SULFATE SODIUM [Concomitant]
     Route: 048
     Dates: start: 20050101

REACTIONS (3)
  - FEMUR FRACTURE [None]
  - LOW TURNOVER OSTEOPATHY [None]
  - OSTEOARTHRITIS [None]
